FAERS Safety Report 15464317 (Version 1)
Quarter: 2018Q4

REPORT INFORMATION
  Report Type: Spontaneous
  Country: US (occurrence: US)
  Receive Date: 20181004
  Receipt Date: 20181004
  Transmission Date: 20190204
  Serious: No
  Sender: FDA-Public Use
  Company Number: US-B.I. PHARMACEUTICALS,INC./RIDGEFIELD-2018-BI-048014

PATIENT
  Age: 61 Year
  Sex: Male

DRUGS (3)
  1. HYDROCHLOROTHIAZIDE. [Concomitant]
     Active Substance: HYDROCHLOROTHIAZIDE
     Indication: HYPERTENSION
     Dosage: FORM STRENGTH: 25 MG; FORMULATION: TABLET
     Route: 048
     Dates: start: 2005
  2. CITALOPRAM [Concomitant]
     Active Substance: CITALOPRAM HYDROBROMIDE
     Indication: DEPRESSION
     Dosage: FORM STRENGTH: 40 MG; FORMULATION: TABLET
     Route: 048
     Dates: start: 2008
  3. AGGRENOX [Suspect]
     Active Substance: ASPIRIN\DIPYRIDAMOLE
     Indication: ATRIAL SEPTAL DEFECT
     Dosage: FORM STRENGTH: 25 MG / 200 MG; FORMULATION: CAPSULE
     Route: 048
     Dates: start: 200807

REACTIONS (2)
  - Spondylitis [Not Recovered/Not Resolved]
  - Off label use [Unknown]

NARRATIVE: CASE EVENT DATE: 200807
